FAERS Safety Report 8590962 (Version 6)
Quarter: 2013Q2

REPORT INFORMATION
  Report Type: Spontaneous
  Country: US (occurrence: US)
  Receive Date: 20120601
  Receipt Date: 20130424
  Transmission Date: 20140414
  Serious: Yes (Hospitalization, Other)
  Sender: FDA-Public Use
  Company Number: US-B.I. PHARMACEUTICALS,INC./RIDGEFIELD-2012-BP-12381BP

PATIENT
  Age: 79 Year
  Sex: Male
  Weight: 91.63 kg

DRUGS (5)
  1. PRADAXA [Suspect]
     Indication: ATRIAL FIBRILLATION
     Dosage: 300 MG
     Route: 048
     Dates: start: 201112, end: 201203
  2. VERAPAMIL ER 240MG CAPSULE [Concomitant]
     Indication: HYPERTENSION
     Dosage: 240 MG
     Route: 048
  3. LOVASTATIN 20MG TABLET [Concomitant]
     Indication: HYPERLIPIDAEMIA
     Dosage: 20 MG
     Route: 048
  4. DIGOXIN [Concomitant]
     Indication: HYPERTENSION
     Dosage: 0.25 MG
     Route: 048
  5. COZAAR [Concomitant]
     Indication: HYPERTENSION
     Dosage: 100 MG
     Route: 048

REACTIONS (4)
  - Splenic rupture [Unknown]
  - Splenic haemorrhage [Unknown]
  - Haemorrhage [Unknown]
  - Gastrointestinal haemorrhage [Unknown]
